FAERS Safety Report 20637237 (Version 1)
Quarter: 2022Q1

REPORT INFORMATION
  Report Type: Spontaneous
  Country: CN (occurrence: CN)
  Receive Date: 20220325
  Receipt Date: 20220325
  Transmission Date: 20220423
  Serious: Yes (Hospitalization)
  Sender: FDA-Public Use
  Company Number: CN-JUBILANT CADISTA PHARMACEUTICALS-2022JUB00077

PATIENT
  Age: 66 Year
  Sex: Male

DRUGS (2)
  1. QUETIAPINE [Suspect]
     Active Substance: QUETIAPINE
     Dosage: UNK
     Route: 065
     Dates: start: 2015
  2. QUETIAPINE [Suspect]
     Active Substance: QUETIAPINE
     Dosage: SUSPECTED OF TAKING A LARGE AMOUNT
     Route: 065

REACTIONS (6)
  - Overdose [Recovered/Resolved]
  - Delirium [Recovered/Resolved]
  - Toxicity to various agents [Recovered/Resolved]
  - Coma [Recovered/Resolved]
  - Hypotension [Recovered/Resolved]
  - Acute lung injury [Recovering/Resolving]

NARRATIVE: CASE EVENT DATE: 20160405
